FAERS Safety Report 4647208-8 (Version None)
Quarter: 2005Q2

REPORT INFORMATION
  Report Type: 
  Country: None (occurrence: None)
  Receive Date: 20050426
  Receipt Date: 20050411
  Transmission Date: 20051028
  Serious: Yes (Hospitalization)
  Sender: FDA-Public Use
  Company Number: 2005058792

PATIENT
  Sex: Female

DRUGS (2)
  1. FRAGMIN [Suspect]
     Indication: PROPHYLAXIS
     Dosage: 5000 I.U., SUBCUTANEOUS
     Route: 058
  2. ANTIBIOTICS (ANTIBIOTICS) [Concomitant]

REACTIONS (1)
  - EXANTHEM [None]
